FAERS Safety Report 5432973-2 (Version None)
Quarter: 2007Q3

REPORT INFORMATION
  Report Type: 
  Country: None (occurrence: None)
  Receive Date: 20070828
  Receipt Date: 20070828
  Transmission Date: 20080115
  Serious: Yes (Other)
  Sender: FDA-Public Use
  Company Number: None

PATIENT
  Age: 44 Year
  Sex: Female
  Weight: 78.0187 kg

DRUGS (2)
  1. LYRICA [Suspect]
     Indication: NERVOUSNESS
     Dosage: 50MG  3X DAILY  PO
     Route: 048
     Dates: start: 20050802, end: 20070828
  2. LYRICA [Suspect]
     Indication: PAIN
     Dosage: 50MG  3X DAILY  PO
     Route: 048
     Dates: start: 20050802, end: 20070828

REACTIONS (12)
  - ABDOMINAL DISTENSION [None]
  - ADNEXA UTERI PAIN [None]
  - COLOUR BLINDNESS [None]
  - DYSPNOEA [None]
  - EYE PAIN [None]
  - HAEMORRHAGIC CYST [None]
  - INTRAOCULAR PRESSURE INCREASED [None]
  - OVARIAN CANCER [None]
  - OVARIAN CYST [None]
  - SWELLING [None]
  - VISUAL DISTURBANCE [None]
  - VISUAL FIELD DEFECT [None]
